FAERS Safety Report 7973101-9 (Version None)
Quarter: 2011Q4

REPORT INFORMATION
  Report Type: 
  Country: None (occurrence: None)
  Receive Date: 20111213
  Receipt Date: 20111206
  Transmission Date: 20120403
  Serious: Yes (Death)
  Sender: FDA-Public Use
  Company Number: JP-ASTELLAS-2011JP008987

PATIENT
  Age: 52 Year
  Sex: Male

DRUGS (4)
  1. CYTARABINE [Concomitant]
     Dosage: 3 G/M2, Q12 HOURS
     Route: 065
  2. METHOTREXATE [Concomitant]
     Indication: PROPHYLAXIS AGAINST GRAFT VERSUS HOST DISEASE
     Route: 065
  3. PROGRAF [Suspect]
     Indication: PROPHYLAXIS AGAINST GRAFT VERSUS HOST DISEASE
     Route: 065
  4. NEUPOGEN [Concomitant]
     Dosage: UNK
     Route: 065

REACTIONS (1)
  - ZYGOMYCOSIS [None]
